FAERS Safety Report 17313733 (Version 2)
Quarter: 2020Q2

REPORT INFORMATION
  Report Type: Report from Study
  Country: US (occurrence: US)
  Receive Date: 20200124
  Receipt Date: 20200408
  Transmission Date: 20200713
  Serious: No
  Sender: FDA-Public Use
  Company Number: NVSC2020US017265

PATIENT
  Age: 36 Year
  Sex: Female

DRUGS (3)
  1. COSENTYX [Suspect]
     Active Substance: SECUKINUMAB
     Indication: PSORIATIC ARTHROPATHY
     Dosage: 300 MG, QMO
     Route: 058
  2. COSENTYX [Suspect]
     Active Substance: SECUKINUMAB
     Indication: PSORIASIS
     Route: 058
  3. BENADRYL [Concomitant]
     Active Substance: DIPHENHYDRAMINE HYDROCHLORIDE
     Indication: HYPERSENSITIVITY
     Route: 065

REACTIONS (7)
  - Therapeutic product effect incomplete [Unknown]
  - Arthralgia [Recovered/Resolved]
  - Rash macular [Unknown]
  - Muscle discomfort [Recovering/Resolving]
  - Product dose omission [Unknown]
  - Psoriasis [Unknown]
  - Cough [Recovering/Resolving]
